FAERS Safety Report 6049487-1 (Version None)
Quarter: 2009Q1

REPORT INFORMATION
  Report Type: 
  Country: None (occurrence: None)
  Receive Date: 20090121
  Receipt Date: 20090109
  Transmission Date: 20090719
  Serious: Yes (Other)
  Sender: FDA-Public Use
  Company Number: GB-1168305

PATIENT
  Sex: Male

DRUGS (1)
  1. CHLORAMPHENICOL [Suspect]
     Indication: HORDEOLUM
     Dosage: 1 DF BID
     Route: 047
     Dates: start: 20081130, end: 20081201

REACTIONS (3)
  - EYELID OEDEMA [None]
  - HYPERSENSITIVITY [None]
  - OCULAR HYPERAEMIA [None]
